FAERS Safety Report 8811068 (Version 1)
Quarter: 2012Q4

REPORT INFORMATION
  Report Type: Spontaneous
  Country: DK (occurrence: None)
  Receive Date: 20120921
  Receipt Date: 20120921
  Transmission Date: 20130627
  Serious: Yes (Death)
  Sender: FDA-Public Use
  Company Number: 2012MA011443

PATIENT
  Age: 63 Year
  Sex: Female

DRUGS (9)
  1. DIAZEPAM [Suspect]
  2. FEVERALL [Suspect]
     Route: 048
  3. CITALOPRAM HYDROBROMIDE [Suspect]
  4. NAPROXEN [Suspect]
     Route: 048
  5. PROPRANOLOL HYDROCHLORIDE [Suspect]
     Route: 048
  6. CODEINE [Suspect]
     Route: 048
  7. CYCLOBENZAPRINE [Suspect]
     Route: 048
  8. TOPIRAMATE [Suspect]
     Route: 048
  9. NORVASC [Suspect]
     Route: 048

REACTIONS (2)
  - Completed suicide [None]
  - Toxicity to various agents [None]
